FAERS Safety Report 6083498-5 (Version None)
Quarter: 2009Q1

REPORT INFORMATION
  Report Type: 
  Country: None (occurrence: None)
  Receive Date: 20090219
  Receipt Date: 20090217
  Transmission Date: 20090719
  Serious: Yes (Other)
  Sender: FDA-Public Use
  Company Number: AU-ASTRAZENECA-2009AP01223

PATIENT
  Sex: Male
  Weight: 68 kg

DRUGS (7)
  1. CRESTOR [Suspect]
     Indication: HYPERCHOLESTEROLAEMIA
     Route: 048
     Dates: start: 20070301, end: 20080601
  2. ALDACTONE [Concomitant]
  3. COUMADIN [Concomitant]
  4. AMIODINE [Concomitant]
  5. BICLAR [Concomitant]
  6. IRBESARTAN [Concomitant]
  7. LANOXIN [Concomitant]

REACTIONS (2)
  - BLOOD CHOLESTEROL INCREASED [None]
  - BLOOD TRIGLYCERIDES INCREASED [None]
